FAERS Safety Report 6493379-0 (Version None)
Quarter: 2009Q4

REPORT INFORMATION
  Report Type: 
  Country: None (occurrence: None)
  Receive Date: 20091214
  Receipt Date: 20091209
  Transmission Date: 20100525
  Serious: Yes (Other)
  Sender: FDA-Public Use
  Company Number: CHPA2009US23251

PATIENT
  Age: 60 Year
  Sex: Male

DRUGS (1)
  1. PRIVATE LABEL (NCH) [Suspect]
     Indication: SMOKING CESSATION THERAPY
     Dosage: 21 MG, QD
     Route: 062
     Dates: start: 20090430, end: 20090530

REACTIONS (2)
  - LUNG CARCINOMA CELL TYPE UNSPECIFIED STAGE IV [None]
  - METASTASIS [None]
